FAERS Safety Report 8397632-5 (Version None)
Quarter: 2012Q2

REPORT INFORMATION
  Report Type: 
  Country: None (occurrence: None)
  Receive Date: 20120529
  Receipt Date: 20120529
  Transmission Date: 20120825
  Serious: No
  Sender: FDA-Public Use
  Company Number: None

PATIENT
  Age: 43 Year
  Sex: Female
  Weight: 65.7716 kg

DRUGS (1)
  1. SAVELLA [Suspect]
     Indication: MIGRAINE
     Dosage: 50 MG 2 X A DAY PO
     Route: 048
     Dates: start: 20120504, end: 20120524

REACTIONS (6)
  - ANXIETY [None]
  - PALPITATIONS [None]
  - OEDEMA PERIPHERAL [None]
  - WEIGHT INCREASED [None]
  - MIGRAINE [None]
  - PAIN [None]
